FAERS Safety Report 7492782-X (Version None)
Quarter: 2011Q2

REPORT INFORMATION
  Report Type: 
  Country: None (occurrence: None)
  Receive Date: 20110519
  Receipt Date: 20110510
  Transmission Date: 20111010
  Serious: Yes (Life-Threatening, Other)
  Sender: FDA-Public Use
  Company Number: CA-BAYER-2011-015128

PATIENT
  Age: 73 Year
  Sex: Male
  Weight: 104 kg

DRUGS (1)
  1. AVELOX [Suspect]
     Indication: LUNG INFECTION
     Dosage: 400 MG, QD
     Dates: start: 20101118

REACTIONS (1)
  - HYPOGLYCAEMIA [None]
